FAERS Safety Report 18622754 (Version 1)
Quarter: 2020Q4

REPORT INFORMATION
  Report Type: Spontaneous
  Country: FR (occurrence: FR)
  Receive Date: 20201216
  Receipt Date: 20201216
  Transmission Date: 20210114
  Serious: Yes (Death, Hospitalization)
  Sender: FDA-Public Use
  Company Number: FR-ACCORD-211228

PATIENT
  Age: 76 Year
  Sex: Male
  Weight: 68 kg

DRUGS (7)
  1. CALCIUM LEVOFOLINATE [Suspect]
     Active Substance: LEVOLEUCOVORIN CALCIUM
     Indication: SMALL INTESTINE ADENOCARCINOMA
     Route: 041
     Dates: start: 20190314, end: 20201103
  2. FLUOROURACIL. [Suspect]
     Active Substance: FLUOROURACIL
     Indication: SMALL INTESTINE ADENOCARCINOMA
     Route: 042
     Dates: start: 20190314, end: 20201103
  3. PRAVASTATIN. [Concomitant]
     Active Substance: PRAVASTATIN
     Route: 048
  4. MONTELUKAST [Concomitant]
     Active Substance: MONTELUKAST SODIUM
     Route: 048
  5. CISPLATIN. [Suspect]
     Active Substance: CISPLATIN
     Indication: SMALL INTESTINE ADENOCARCINOMA
     Route: 042
     Dates: start: 20201014, end: 20201103
  6. SEREVENT DISKUS [Concomitant]
     Active Substance: SALMETEROL XINAFOATE
     Route: 055
  7. VENTOLINE [Concomitant]
     Active Substance: ALBUTEROL
     Route: 055

REACTIONS (1)
  - Ischaemic stroke [Fatal]

NARRATIVE: CASE EVENT DATE: 20201105
